FAERS Safety Report 21211838 (Version 1)
Quarter: 2022Q3

REPORT INFORMATION
  Report Type: Report from Study
  Country: US (occurrence: None)
  Receive Date: 20220815
  Receipt Date: 20220815
  Transmission Date: 20221026
  Serious: Yes (Other)
  Sender: FDA-Public Use
  Company Number: 2022A264265

PATIENT
  Sex: Female

DRUGS (15)
  1. CALQUENCE [Suspect]
     Active Substance: ACALABRUTINIB
     Route: 048
     Dates: start: 20220610
  2. OREGANO LEAF OIL [Concomitant]
     Active Substance: OREGANO LEAF OIL
  3. ALLEVOCITIRIZIN PRN [Concomitant]
  4. BENADRYL [Concomitant]
     Active Substance: DIPHENHYDRAMINE HYDROCHLORIDE
  5. VITAMIN C [Concomitant]
     Active Substance: ASCORBIC ACID
     Dosage: 1-6G PO QC
  6. WATER CRESS [Concomitant]
  7. QUERCETIN [Concomitant]
     Active Substance: QUERCETIN
     Dosage: 500MG 1PO QD
  8. DIETARY SUPPLEMENT\GRAPE SEED EXTRACT [Concomitant]
     Active Substance: DIETARY SUPPLEMENT\GRAPE SEED EXTRACT
  9. OLIVE [Concomitant]
     Active Substance: GREEN OLIVE
  10. VITAMIN D3 [Concomitant]
     Active Substance: CHOLECALCIFEROL
     Dosage: 5000 PO QD
  11. SYNTHROID [Concomitant]
     Active Substance: LEVOTHYROXINE SODIUM
     Dosage: 137 MCG TABLET 1 PO QC
  12. VITAMIN B- 12 [Concomitant]
  13. ACALABRUTINIB [Concomitant]
     Active Substance: ACALABRUTINIB
     Dosage: ORALLY EVERY 12 HOURS
  14. BERBERINE [Concomitant]
     Active Substance: BERBERINE
  15. ZINC [Concomitant]
     Active Substance: ZINC

REACTIONS (21)
  - Lymphadenopathy [Unknown]
  - Nodal marginal zone B-cell lymphoma stage III [Unknown]
  - Haemangioma of skin [Unknown]
  - Contusion [Unknown]
  - Arthralgia [Recovered/Resolved]
  - Headache [Unknown]
  - Dizziness [Unknown]
  - Fatigue [Unknown]
  - Rash erythematous [Unknown]
  - Influenza like illness [Unknown]
  - Faeces soft [Unknown]
  - Nausea [Unknown]
  - Wheezing [Unknown]
  - Lymphatic disorder [Unknown]
  - Dyspnoea [Unknown]
  - Cough [Unknown]
  - Diarrhoea [Unknown]
  - Memory impairment [Unknown]
  - Insomnia [Unknown]
  - Product dose omission in error [Unknown]
  - Memory impairment [Unknown]
